FAERS Safety Report 8232680-7 (Version None)
Quarter: 2012Q1

REPORT INFORMATION
  Report Type: 
  Country: None (occurrence: None)
  Receive Date: 20120323
  Receipt Date: 20120316
  Transmission Date: 20120608
  Serious: Yes (Other)
  Sender: FDA-Public Use
  Company Number: PHHY2012FR024475

PATIENT
  Age: 19 Year
  Sex: Female

DRUGS (1)
  1. EXTAVIA [Suspect]
     Dosage: UNK UKN, UNK
     Route: 058

REACTIONS (5)
  - MIDDLE INSOMNIA [None]
  - MIGRAINE [None]
  - HYPOAESTHESIA [None]
  - EYE PAIN [None]
  - MULTIPLE SCLEROSIS RELAPSE [None]
